FAERS Safety Report 10461044 (Version 1)
Quarter: 2014Q3

REPORT INFORMATION
  Report Type: Spontaneous
  Country: US (occurrence: US)
  Receive Date: 20140918
  Receipt Date: 20140918
  Transmission Date: 20150326
  Serious: No
  Sender: FDA-Public Use
  Company Number: US-009507513-1409USA006437

PATIENT
  Age: 18 Year
  Sex: Female
  Weight: 58.96 kg

DRUGS (1)
  1. IMPLANON [Suspect]
     Active Substance: ETONOGESTREL
     Indication: CONTRACEPTION
     Dosage: 1 IMPLANON INJECTION
     Route: 059
     Dates: start: 20120516

REACTIONS (7)
  - Menorrhagia [Unknown]
  - Abdominal pain [Unknown]
  - Amenorrhoea [Unknown]
  - Decreased appetite [Unknown]
  - Pain in extremity [Unknown]
  - Metrorrhagia [Unknown]
  - Asthenia [Unknown]

NARRATIVE: CASE EVENT DATE: 2012
